FAERS Safety Report 26174696 (Version 1)
Quarter: 2025Q4

REPORT INFORMATION
  Report Type: Spontaneous
  Country: US (occurrence: None)
  Receive Date: 20251217
  Receipt Date: 20251217
  Transmission Date: 20260118
  Serious: Yes (Disabling)
  Sender: FDA-CTU
  Company Number: None

PATIENT
  Age: 44 Year
  Sex: Female
  Weight: 65.25 kg

DRUGS (11)
  1. LEVOFLOXACIN [Suspect]
     Active Substance: LEVOFLOXACIN
     Indication: Sinusitis
     Dates: start: 20251023, end: 20251212
  2. LEVOFLOXACIN [Suspect]
     Active Substance: LEVOFLOXACIN
     Indication: Pathogen resistance
  3. QULIPTA [Concomitant]
     Active Substance: ATOGEPANT
  4. NURTEC ODT [Concomitant]
     Active Substance: RIMEGEPANT SULFATE
  5. PROGESTERONE [Concomitant]
     Active Substance: PROGESTERONE
  6. Esmeprazole [Concomitant]
  7. LINZESS [Concomitant]
     Active Substance: LINACLOTIDE
  8. MAGNESIUM [Concomitant]
     Active Substance: MAGNESIUM
  9. VITAMINS [Concomitant]
     Active Substance: VITAMINS
  10. VITAMIN C [Concomitant]
     Active Substance: ASCORBIC ACID
  11. IBUPROFEN [Concomitant]
     Active Substance: IBUPROFEN

REACTIONS (9)
  - Therapy non-responder [None]
  - Pain in extremity [None]
  - Arthralgia [None]
  - Pain in extremity [None]
  - Fatigue [None]
  - Loss of personal independence in daily activities [None]
  - Tendon disorder [None]
  - Tendon pain [None]
  - Myalgia [None]

NARRATIVE: CASE EVENT DATE: 20251212
